FAERS Safety Report 13913934 (Version 1)
Quarter: 2017Q3

REPORT INFORMATION
  Report Type: Spontaneous
  Country: US (occurrence: None)
  Receive Date: 20170827
  Receipt Date: 20170827
  Transmission Date: 20171127
  Serious: No
  Sender: FDA-Public Use
  Company Number: None

PATIENT
  Sex: Female

DRUGS (1)
  1. COPAXONE [Suspect]
     Active Substance: GLATIRAMER ACETATE
     Indication: MULTIPLE SCLEROSIS
     Dosage: 40 MG THREE TIMES A WEEK SQ?11-08-2016 TO LAST SHIP 05-11-2017
     Route: 058
     Dates: start: 20151108, end: 20170511

REACTIONS (1)
  - Injection site pruritus [None]
